FAERS Safety Report 8696836 (Version 2)
Quarter: 2015Q1

REPORT INFORMATION
  Report Type: Report from Study
  Country: US (occurrence: US)
  Receive Date: 20120801
  Receipt Date: 20150318
  Transmission Date: 20150721
  Serious: Yes (Death)
  Sender: FDA-Public Use
  Company Number: US-ROCHE-1093847

PATIENT
  Age: 75 Year
  Sex: Male

DRUGS (4)
  1. ONXOL [Concomitant]
     Active Substance: PACLITAXEL
     Dosage: IN 250ML SODIUM CHLORIDE
     Route: 042
     Dates: start: 20110907
  2. SODIUM CHLORIDE. [Concomitant]
     Active Substance: SODIUM CHLORIDE
  3. TORISEL [Concomitant]
     Active Substance: TEMSIROLIMUS
     Dosage: IN 250ML SODIUM CHLORIDE
     Route: 042
     Dates: start: 20110907
  4. AVASTIN [Suspect]
     Active Substance: BEVACIZUMAB
     Indication: MALIGNANT NEOPLASM OF PLEURA
     Dosage: IN 100ML SODIUM CHLORIDE INJECTION INFUSE OVER 30MINS AT 200ML PER HOUR
     Route: 042
     Dates: start: 20110907

REACTIONS (1)
  - Death [Fatal]

NARRATIVE: CASE EVENT DATE: 20120114
